FAERS Safety Report 7031645-0 (Version None)
Quarter: 2010Q4

REPORT INFORMATION
  Report Type: 
  Country: None (occurrence: None)
  Receive Date: 20101006
  Receipt Date: 20101006
  Transmission Date: 20110411
  Serious: Yes (Other)
  Sender: FDA-Public Use
  Company Number: None

PATIENT
  Age: 54 Year
  Sex: Female
  Weight: 63 kg

DRUGS (1)
  1. RAMIFENTONAL [Suspect]

REACTIONS (8)
  - CHEST DISCOMFORT [None]
  - DEPRESSED MOOD [None]
  - DYSPNOEA [None]
  - FEELING COLD [None]
  - HYPOTENSION [None]
  - INSOMNIA [None]
  - RESTLESSNESS [None]
  - TREMOR [None]
